FAERS Safety Report 10736788 (Version 6)
Quarter: 2015Q4

REPORT INFORMATION
  Report Type: Spontaneous
  Country: US (occurrence: US)
  Receive Date: 20150126
  Receipt Date: 20151002
  Transmission Date: 20160304
  Serious: Yes (Hospitalization)
  Sender: FDA-Public Use
  Company Number: US-PFIZER INC-2015025603

PATIENT
  Age: 75 Year
  Sex: Male
  Weight: 72 kg

DRUGS (27)
  1. INLYTA [Suspect]
     Active Substance: AXITINIB
     Dosage: UNK
     Dates: end: 20150409
  2. VALSARTAN. [Concomitant]
     Active Substance: VALSARTAN
     Dosage: 320 MG, DAILY
     Dates: start: 20150604
  3. INLYTA [Suspect]
     Active Substance: AXITINIB
     Indication: METASTATIC RENAL CELL CARCINOMA
     Dosage: 5 MG, UNK
     Route: 048
     Dates: start: 2014
  4. INLYTA [Suspect]
     Active Substance: AXITINIB
     Dosage: 7 MG, 2X/DAY
     Dates: start: 20141030
  5. INLYTA [Suspect]
     Active Substance: AXITINIB
     Dosage: 7 MG, 1X/DAY
     Route: 048
  6. MINOXIDIL. [Concomitant]
     Active Substance: MINOXIDIL
     Dosage: 5 MG (2 TABLETS OF 2.5 MG),1X/DAY
     Route: 048
  7. INLYTA [Suspect]
     Active Substance: AXITINIB
     Dosage: 6 MG, UNK (5 MG AND 1 MG)
     Dates: start: 2014
  8. INLYTA [Suspect]
     Active Substance: AXITINIB
     Dosage: 7 MG, 2X/DAY
     Route: 048
     Dates: start: 20150115
  9. INLYTA [Suspect]
     Active Substance: AXITINIB
     Dosage: 5 MG, 2X/DAY
  10. INLYTA [Suspect]
     Active Substance: AXITINIB
     Dosage: 5 MG, 2X/DAY
     Route: 048
     Dates: start: 20141020
  11. INLYTA [Suspect]
     Active Substance: AXITINIB
     Dosage: 9 MG, DAILY (7 MG AM 2 MG PM)
     Route: 048
     Dates: start: 20150212, end: 20150409
  12. VIAGRA [Concomitant]
     Active Substance: SILDENAFIL CITRATE
     Dosage: 100 MG, AS NEEDED (1 TABLET)
     Route: 048
  13. INLYTA [Suspect]
     Active Substance: AXITINIB
     Dosage: 7 MG, 2X/DAY (2 TABLETS OF 1 MG BID + 1 TABLET OF 5 MG BID)
     Route: 048
     Dates: start: 20141004, end: 20141230
  14. DORZOLAMIDE [Concomitant]
     Active Substance: DORZOLAMIDE
     Dosage: 1 DROP, 2X/DAY (2%)
     Route: 047
  15. FUROSEMIDE. [Concomitant]
     Active Substance: FUROSEMIDE
     Dosage: 20 MG, 1X/DAY
     Route: 048
  16. INLYTA [Suspect]
     Active Substance: AXITINIB
     Dosage: 7 MG, 2X/DAY (2 TABLETS OF 1 MG BID + 1 TABLET OF 5 MG BID)
     Route: 048
     Dates: start: 20150111, end: 20150409
  17. ALLOPURINOL. [Concomitant]
     Active Substance: ALLOPURINOL
     Dosage: 300 MG, 1X/DAY
     Route: 048
  18. ASPIR-81 [Concomitant]
     Active Substance: ASPIRIN
     Dosage: 1 TABLET, DAILY
  19. BENICAR [Concomitant]
     Active Substance: OLMESARTAN MEDOXOMIL
     Dosage: 40 MG, 1X/DAY
     Route: 048
  20. BYSTOLIC [Concomitant]
     Active Substance: NEBIVOLOL HYDROCHLORIDE
     Dosage: 10 MG, 1 TABLET, 1X/DAY
     Route: 048
  21. PANTOPRAZOLE [Concomitant]
     Active Substance: PANTOPRAZOLE SODIUM
     Dosage: 40 MG, DAILY (1 TABLET)
     Route: 048
  22. MINOXIDIL. [Concomitant]
     Active Substance: MINOXIDIL
     Dosage: 5 MG, DAILY
     Dates: start: 20150831
  23. INLYTA [Suspect]
     Active Substance: AXITINIB
     Dosage: 9 MG, 1X/DAY
     Route: 048
     Dates: start: 20150111
  24. LIDOCAINE VISCOUS [Concomitant]
     Active Substance: LIDOCAINE HYDROCHLORIDE
     Dosage: 1-2 TEASPOONFUL 4X/DAY (2%), AS NEEDED
     Route: 048
  25. TRAMADOL. [Concomitant]
     Active Substance: TRAMADOL
     Dosage: 50 MG, UNK
  26. ALPHAGAN P [Concomitant]
     Active Substance: BRIMONIDINE TARTRATE
     Dosage: 1 DROP, 2X/DAY (0.15%)
     Route: 047
  27. REA-LO [Concomitant]
     Dosage: (40% LOTION)

REACTIONS (12)
  - Haemorrhoids [Not Recovered/Not Resolved]
  - Peripheral swelling [Not Recovered/Not Resolved]
  - Pain in extremity [Recovered/Resolved]
  - Oropharyngeal pain [Recovered/Resolved]
  - Diarrhoea [Recovered/Resolved]
  - Rash [Recovered/Resolved]
  - Disease progression [Unknown]
  - Skin exfoliation [Recovered/Resolved]
  - Blister [Recovered/Resolved]
  - Limb discomfort [Unknown]
  - Metastatic renal cell carcinoma [Unknown]
  - Gait disturbance [Recovered/Resolved]

NARRATIVE: CASE EVENT DATE: 2014
